FAERS Safety Report 6422252-9 (Version None)
Quarter: 2009Q4

REPORT INFORMATION
  Report Type: 
  Country: None (occurrence: None)
  Receive Date: 20091030
  Receipt Date: 20091026
  Transmission Date: 20100525
  Serious: Yes (Other)
  Sender: FDA-Public Use
  Company Number: SE-TEVA-213469ISR

PATIENT
  Sex: Female

DRUGS (3)
  1. OXAZEPAM [Suspect]
     Indication: PREMEDICATION
     Route: 048
     Dates: start: 20090618, end: 20090618
  2. ATROPINE SULFATE [Suspect]
     Indication: PREMEDICATION
     Route: 058
     Dates: start: 20090618, end: 20090618
  3. KETOBEMIDONE HYDROCHLORIDE [Suspect]
     Indication: PREMEDICATION
     Route: 058
     Dates: start: 20090618, end: 20090618

REACTIONS (5)
  - ANXIETY [None]
  - DRY MOUTH [None]
  - DYSPHAGIA [None]
  - NAUSEA [None]
  - PRURITUS [None]
